FAERS Safety Report 7658217-9 (Version None)
Quarter: 2011Q3

REPORT INFORMATION
  Report Type: 
  Country: None (occurrence: None)
  Receive Date: 20110805
  Receipt Date: 20110725
  Transmission Date: 20111222
  Serious: Yes (Hospitalization)
  Sender: FDA-Public Use
  Company Number: JP-JNJFOC-20110709114

PATIENT
  Sex: Male

DRUGS (6)
  1. TOPIRAMATE [Suspect]
     Indication: EPILEPSY
     Route: 048
  2. ZONISAMIDE [Suspect]
     Route: 048
     Dates: start: 20110724
  3. ZONISAMIDE [Suspect]
     Indication: EPILEPSY
     Route: 048
  4. ZONISAMIDE [Suspect]
     Route: 048
     Dates: start: 20110721
  5. PYRIDOXINE HCL [Suspect]
     Indication: EPILEPSY
     Dates: end: 20110721
  6. VALPROATE SODIUM [Concomitant]
     Route: 048

REACTIONS (3)
  - VOMITING [None]
  - DEHYDRATION [None]
  - ACUTE TONSILLITIS [None]
